FAERS Safety Report 6225446-0 (Version None)
Quarter: 2009Q2

REPORT INFORMATION
  Report Type: 
  Country: None (occurrence: None)
  Receive Date: 20090612
  Receipt Date: 20090420
  Transmission Date: 20091009
  Serious: No
  Sender: FDA-Public Use
  Company Number: US-ABBOTT-09P-163-0569187-00

PATIENT
  Age: 56 Year
  Sex: Female
  Weight: 56.75 kg

DRUGS (4)
  1. HUMIRA [Suspect]
     Indication: ANKYLOSING SPONDYLITIS
     Route: 058
     Dates: start: 20090417
  2. ARTHROTEC [Concomitant]
     Indication: ANKYLOSING SPONDYLITIS
     Dosage: AS NEEDED FOR PAIN
     Dates: start: 20080101
  3. ARTHROTEC [Concomitant]
     Indication: PAIN
  4. CARAFATE [Concomitant]
     Indication: ABDOMINAL DISCOMFORT
     Dosage: AS NEEDED FOR STOMACH UPSET
     Route: 048
     Dates: start: 20080101

REACTIONS (1)
  - PAIN [None]
